FAERS Safety Report 4339294-X (Version None)
Quarter: 2004Q2

REPORT INFORMATION
  Report Type: 
  Country: None (occurrence: None)
  Receive Date: 20040412
  Receipt Date: 20040330
  Transmission Date: 20050107
  Serious: Yes (Hospitalization)
  Sender: FDA-Public Use
  Company Number: TCI2001A02616

PATIENT
  Age: 82 Year
  Sex: Female

DRUGS (10)
  1. ACTOS [Suspect]
     Indication: DIABETES MELLITUS NON-INSULIN-DEPENDENT
     Dosage: 15 MG (15 MG, 1 IN 1 D) PER ORAL
     Route: 048
     Dates: start: 20001221, end: 20010406
  2. POTACOL-R (POTACOL-R) [Suspect]
     Dosage: 500 ML (50 ML, 1D)
     Route: 041
     Dates: start: 20010326, end: 20010327
  3. POTACOL-R (POTACOL-R) [Suspect]
     Dosage: 500 ML (50 ML, 1D)
     Route: 041
     Dates: start: 20010330, end: 20010330
  4. IMIDAPRIL HYDROCHLORIDE [Concomitant]
  5. WARFARIN SODIUM [Concomitant]
  6. METILDIGOXIN [Concomitant]
  7. GLICLAZIDE [Concomitant]
  8. NITRAZEPAM [Concomitant]
  9. BASSAMIN (ASPIRIN/DIALUMINATE) [Concomitant]
  10. CIMETIDINE HCL [Concomitant]

REACTIONS (9)
  - ATRIAL FIBRILLATION [None]
  - CARDIAC FAILURE [None]
  - CARDIOMEGALY [None]
  - DYSPNOEA [None]
  - FATIGUE [None]
  - MITRAL VALVE INCOMPETENCE [None]
  - PULMONARY CONGESTION [None]
  - TRICUSPID VALVE INCOMPETENCE [None]
  - VENTRICULAR HYPERTROPHY [None]
